FAERS Safety Report 4355588-6 (Version None)
Quarter: 2004Q2

REPORT INFORMATION
  Report Type: 
  Country: None (occurrence: None)
  Receive Date: 20040510
  Receipt Date: 20040426
  Transmission Date: 20050107
  Serious: Yes (Congenital Anomaly)
  Sender: FDA-Public Use
  Company Number: FR-GLAXOSMITHKLINE-B0331149C

PATIENT

DRUGS (1)
  1. LAMICTAL [Suspect]
     Dates: start: 20021101

REACTIONS (2)
  - DRUG EXPOSURE DURING PREGNANCY [None]
  - SPINA BIFIDA [None]
